FAERS Safety Report 5755508-3 (Version None)
Quarter: 2008Q2

REPORT INFORMATION
  Report Type: 
  Country: None (occurrence: None)
  Receive Date: 20080530
  Receipt Date: 20080530
  Transmission Date: 20081010
  Serious: Yes (Hospitalization)
  Sender: FDA-Public Use
  Company Number: None

PATIENT
  Age: 69 Year
  Sex: Male
  Weight: 93.8 kg

DRUGS (11)
  1. MITOXANTRONE [Suspect]
     Indication: PROSTATE CANCER
     Dosage: 12 MG/M2 Q3W - INTRAVENOUS DRIP
     Route: 041
     Dates: start: 20080207, end: 20080207
  2. PREDNISONE TAB [Suspect]
     Dosage: 10 MG QD - ORAL
     Route: 048
     Dates: start: 20080207, end: 20080216
  3. HYDRALAZINE HCL [Concomitant]
  4. NYSTATIN [Concomitant]
  5. HYDROCORTISONE [Concomitant]
  6. VICODIN [Concomitant]
  7. OXYCODONE HCL [Concomitant]
  8. SENNA [Concomitant]
  9. OMEPRAZOLE [Concomitant]
  10. OXYCODONE HYDROCHLORIDE [Concomitant]
  11. ACETAMINOPHEN/ OXYCODONE HYDROCHLORIDE [Concomitant]

REACTIONS (13)
  - BLOOD HOMOCYSTEINE INCREASED [None]
  - CEREBRAL INFARCTION [None]
  - CEREBROVASCULAR ACCIDENT [None]
  - DYSARTHRIA [None]
  - DYSPHAGIA [None]
  - FATIGUE [None]
  - HAEMOGLOBIN DECREASED [None]
  - HYPOAESTHESIA [None]
  - LEUKOPENIA [None]
  - LOW DENSITY LIPOPROTEIN INCREASED [None]
  - MUSCULAR WEAKNESS [None]
  - NEUTROPENIA [None]
  - PARALYSIS [None]
